FAERS Safety Report 5885194-3 (Version None)
Quarter: 2008Q3

REPORT INFORMATION
  Report Type: 
  Country: None (occurrence: None)
  Receive Date: 20080916
  Receipt Date: 20080811
  Transmission Date: 20090109
  Serious: Yes (Other)
  Sender: FDA-Public Use
  Company Number: DE-WYE-G01986408

PATIENT
  Sex: Female

DRUGS (6)
  1. TREVILOR RETARD [Suspect]
     Route: 048
     Dates: start: 20080810, end: 20080810
  2. TREVILOR RETARD [Suspect]
     Route: 048
  3. TRAMADOL HCL [Suspect]
     Route: 048
     Dates: start: 20080810, end: 20080810
  4. TRAMADOL HCL [Suspect]
     Route: 048
  5. MEDAZEPAM [Suspect]
     Route: 048
     Dates: start: 20080810, end: 20080810
  6. MEDAZEPAM [Suspect]
     Route: 048

REACTIONS (3)
  - DISCOMFORT [None]
  - DRUG ABUSE [None]
  - VERTIGO [None]
